FAERS Safety Report 19101430 (Version 1)
Quarter: 2021Q2

REPORT INFORMATION
  Report Type: Spontaneous
  Country: US (occurrence: US)
  Receive Date: 20210406
  Receipt Date: 20210406
  Transmission Date: 20210717
  Serious: No
  Sender: FDA-Public Use
  Company Number: None

PATIENT
  Age: 50 Year
  Sex: Female
  Weight: 47.25 kg

DRUGS (6)
  1. MG [Concomitant]
     Active Substance: MAGNESIUM
  2. VIT. D [Concomitant]
     Active Substance: VITAMIN D NOS
  3. FEMYNOR [Concomitant]
     Active Substance: ETHINYL ESTRADIOL\NORGESTIMATE
  4. DOXYCYCLINE HYC 100MG TAB [Suspect]
     Active Substance: DOXYCYCLINE HYCLATE
     Indication: ILLNESS
     Dosage: ?          QUANTITY:1 TABLET(S);?
     Route: 048
     Dates: start: 20200410, end: 20200423
  5. ZINC. [Concomitant]
     Active Substance: ZINC
  6. CA [Concomitant]

REACTIONS (10)
  - Pollakiuria [None]
  - Back pain [None]
  - Pain [None]
  - Mean cell haemoglobin concentration abnormal [None]
  - Blister [None]
  - Bone pain [None]
  - Abdominal pain upper [None]
  - Amylase abnormal [None]
  - Polyp [None]
  - Photosensitivity reaction [None]

NARRATIVE: CASE EVENT DATE: 20200423
